FAERS Safety Report 9934892 (Version 1)
Quarter: 2014Q1

REPORT INFORMATION
  Report Type: Spontaneous
  Country: US (occurrence: US)
  Receive Date: 20140228
  Receipt Date: 20140228
  Transmission Date: 20141002
  Serious: Yes (Hospitalization)
  Sender: FDA-Public Use
  Company Number: US-ACTELION-A-US2014-95190

PATIENT
  Age: 64 Year
  Sex: Female

DRUGS (1)
  1. VELETRI [Suspect]
     Indication: COR PULMONALE CHRONIC
     Dosage: 10 NG, PER MIN
     Route: 042
     Dates: start: 20140207

REACTIONS (2)
  - Blood glucose decreased [Unknown]
  - Hypotension [Unknown]
